FAERS Safety Report 23544764 (Version 1)
Quarter: 2024Q1

REPORT INFORMATION
  Report Type: Spontaneous
  Country: US (occurrence: US)
  Receive Date: 20240220
  Receipt Date: 20240220
  Transmission Date: 20240409
  Serious: Yes (Other)
  Sender: FDA-Public Use
  Company Number: US-PFIZER INC-PV202300078149

PATIENT
  Age: 72 Year
  Sex: Female
  Weight: 55.6 kg

DRUGS (4)
  1. IBRANCE [Suspect]
     Active Substance: PALBOCICLIB
     Indication: Breast cancer metastatic
     Dosage: 100 MG ONCE A DAY 3 WEEKS ON THEN 1 WEEK OFF
     Route: 048
     Dates: start: 20230502
  2. IBRANCE [Suspect]
     Active Substance: PALBOCICLIB
     Dosage: 75 MG DAILY (21/28)
     Dates: start: 20230531
  3. FULVESTRANT [Concomitant]
     Active Substance: FULVESTRANT
  4. XGEVA [Concomitant]
     Active Substance: DENOSUMAB

REACTIONS (8)
  - Neutropenia [Unknown]
  - Chest discomfort [Recovering/Resolving]
  - Fatigue [Unknown]
  - Dizziness [Unknown]
  - Anaemia macrocytic [Unknown]
  - Decreased appetite [Unknown]
  - Diarrhoea [Unknown]
  - Axillary pain [Unknown]

NARRATIVE: CASE EVENT DATE: 20230101
